FAERS Safety Report 16069139 (Version 3)
Quarter: 2019Q2

REPORT INFORMATION
  Report Type: Report from Study
  Country: JP (occurrence: JP)
  Receive Date: 20190313
  Receipt Date: 20190517
  Transmission Date: 20190711
  Serious: Yes (Death, Other)
  Sender: FDA-Public Use
  Company Number: JP-BRISTOL-MYERS SQUIBB COMPANY-BMS-2019-024715

PATIENT
  Age: 72 Year
  Sex: Female
  Weight: 47 kg

DRUGS (2)
  1. TOPOTECIN [Suspect]
     Active Substance: IRINOTECAN HYDROCHLORIDE
     Indication: GASTRIC CANCER
     Dosage: 165 MILLIGRAM
     Route: 065
     Dates: start: 20181108, end: 20181108
  2. NIVOLUMAB [Suspect]
     Active Substance: NIVOLUMAB
     Indication: GASTRIC CANCER
     Dosage: 240 MILLIGRAM
     Route: 041
     Dates: start: 20181017, end: 20181219

REACTIONS (3)
  - General physical health deterioration [Fatal]
  - Paralysis recurrent laryngeal nerve [Not Recovered/Not Resolved]
  - Malignant neoplasm progression [Fatal]

NARRATIVE: CASE EVENT DATE: 20181031
